FAERS Safety Report 7437635-8 (Version None)
Quarter: 2011Q2

REPORT INFORMATION
  Report Type: 
  Country: None (occurrence: None)
  Receive Date: 20110426
  Receipt Date: 20110421
  Transmission Date: 20111010
  Serious: Yes (Death)
  Sender: FDA-Public Use
  Company Number: FR-ROCHE-756019

PATIENT
  Sex: Female

DRUGS (2)
  1. AVASTIN [Suspect]
     Indication: BREAST CANCER
     Route: 065
  2. TAXOTERE [Concomitant]
     Indication: BREAST CANCER

REACTIONS (1)
  - BREAST CANCER [None]
